FAERS Safety Report 6143782-3 (Version None)
Quarter: 2009Q2

REPORT INFORMATION
  Report Type: 
  Country: None (occurrence: None)
  Receive Date: 20090403
  Receipt Date: 20090326
  Transmission Date: 20091009
  Serious: Yes (Other)
  Sender: FDA-Public Use
  Company Number: PHHY2009GB07211

PATIENT
  Age: 95 Year
  Sex: Female

DRUGS (4)
  1. EXELON [Suspect]
     Indication: DEMENTIA
     Dosage: 4.6 MG, UNK
     Route: 062
     Dates: start: 20081023
  2. CALCIUM CARBONATE [Concomitant]
     Indication: OSTEOPOROSIS
     Dosage: UNK
     Route: 048
     Dates: start: 20090306
  3. COLECALCIFEROL [Concomitant]
  4. TRAZODONE [Concomitant]
     Indication: DEMENTIA
     Dosage: 50 MG, BID
     Route: 048
     Dates: start: 20081218

REACTIONS (2)
  - RASH [None]
  - VASCULITIS [None]
